FAERS Safety Report 5129426-8 (Version None)
Quarter: 2006Q4

REPORT INFORMATION
  Report Type: 
  Country: None (occurrence: None)
  Receive Date: 20061012
  Receipt Date: 20061003
  Transmission Date: 20070319
  Serious: Yes (Hospitalization)
  Sender: FDA-Public Use
  Company Number: 163-20785-06100170

PATIENT
  Age: 75 Year
  Sex: Male

DRUGS (1)
  1. THALOMID [Suspect]
     Indication: MYELODYSPLASTIC SYNDROME
     Dosage: 200 MG, 1 IN 1 D, ORAL
     Route: 048
     Dates: start: 20060829, end: 20060101

REACTIONS (1)
  - NEPHROLITHIASIS [None]
